FAERS Safety Report 17498136 (Version 1)
Quarter: 2020Q1

REPORT INFORMATION
  Report Type: Spontaneous
  Country: US (occurrence: US)
  Receive Date: 20200304
  Receipt Date: 20200304
  Transmission Date: 20200409
  Serious: Yes (Hospitalization, Other)
  Sender: FDA-Public Use
  Company Number: US-ASTRAZENECA-2020SE30106

PATIENT
  Age: 29281 Day
  Sex: Male
  Weight: 67.1 kg

DRUGS (2)
  1. DALIRESP [Suspect]
     Active Substance: ROFLUMILAST
     Indication: DYSPNOEA
     Dosage: 250.0UG UNKNOWN
     Route: 048
     Dates: start: 20191126
  2. DALIRESP [Suspect]
     Active Substance: ROFLUMILAST
     Indication: CHRONIC OBSTRUCTIVE PULMONARY DISEASE
     Dosage: 250.0UG UNKNOWN
     Route: 048
     Dates: start: 20191126

REACTIONS (10)
  - Suicidal ideation [Unknown]
  - Decreased appetite [Unknown]
  - Sleep disorder [Unknown]
  - Product dose omission [Unknown]
  - Weight decreased [Unknown]
  - Dizziness [Unknown]
  - Nausea [Not Recovered/Not Resolved]
  - Diarrhoea [Unknown]
  - Influenza like illness [Unknown]
  - Malaise [Not Recovered/Not Resolved]

NARRATIVE: CASE EVENT DATE: 201911
